FAERS Safety Report 5200876-4 (Version None)
Quarter: 2006Q4

REPORT INFORMATION
  Report Type: 
  Country: None (occurrence: None)
  Receive Date: 20061229
  Receipt Date: 20061214
  Transmission Date: 20070319
  Serious: Yes (Hospitalization, Other)
  Sender: FDA-Public Use
  Company Number: VNL_0345_2006

PATIENT
  Sex: Male

DRUGS (1)
  1. APO-GO [Suspect]
     Dosage: DF INFUSION SC
     Route: 058

REACTIONS (1)
  - PSYCHOTIC DISORDER [None]
